FAERS Safety Report 5224098-6 (Version None)
Quarter: 2007Q1

REPORT INFORMATION
  Report Type: 
  Country: None (occurrence: None)
  Receive Date: 20070130
  Receipt Date: 20070129
  Transmission Date: 20070707
  Serious: Yes (Death)
  Sender: FDA-Public Use
  Company Number: IT-BRISTOL-MYERS SQUIBB COMPANY-13660915

PATIENT
  Age: 83 Year
  Sex: Female

DRUGS (1)
  1. PACLITAXEL [Suspect]
     Indication: ANGIOSARCOMA

REACTIONS (4)
  - ANAEMIA [None]
  - HYPOVOLAEMIC SHOCK [None]
  - RENAL FAILURE CHRONIC [None]
  - TUMOUR HAEMORRHAGE [None]
